FAERS Safety Report 25267604 (Version 1)
Quarter: 2025Q2

REPORT INFORMATION
  Report Type: Spontaneous
  Country: CN (occurrence: CN)
  Receive Date: 20250505
  Receipt Date: 20250505
  Transmission Date: 20250716
  Serious: Yes (Other)
  Sender: CHEPLAPHARM
  Company Number: CN-CHEPLA-2025005610

PATIENT
  Age: 93 Year
  Sex: Female

DRUGS (2)
  1. OLANZAPINE [Suspect]
     Active Substance: OLANZAPINE
     Dosage: APPROVAL NUMBER H20160497; (0.25 TABLETS, PO QN) ?DAILY DOSE: 1.25 MILLIGRAM
     Route: 048
     Dates: start: 20250401, end: 20250401
  2. OLANZAPINE [Suspect]
     Active Substance: OLANZAPINE
     Dosage: NATIONAL APPROVAL NUMBER H20203557; OLANZAPINE TABLETS (YOUYUE) (0.5 TABLETS, PO QN BEFORE SLEEP)
     Route: 048
     Dates: start: 20250402, end: 20250403

REACTIONS (5)
  - Somnolence [Recovering/Resolving]
  - Confusional state [Recovering/Resolving]
  - Blood pressure increased [Recovering/Resolving]
  - Unresponsive to stimuli [Recovering/Resolving]
  - Off label use [Recovered/Resolved]

NARRATIVE: CASE EVENT DATE: 20250401
